FAERS Safety Report 4720851-3 (Version None)
Quarter: 2005Q3

REPORT INFORMATION
  Report Type: 
  Country: None (occurrence: None)
  Receive Date: 20050720
  Receipt Date: 20050707
  Transmission Date: 20060218
  Serious: Yes (Hospitalization, Other)
  Sender: FDA-Public Use
  Company Number: 2005098498

PATIENT
  Age: 37 Year
  Sex: Female

DRUGS (1)
  1. NICORETTE [Suspect]
     Indication: SMOKING CESSATION THERAPY
     Dosage: 15 MG PATCH, TRANSDERMAL
     Route: 062
     Dates: start: 20040301

REACTIONS (2)
  - CEREBROVASCULAR ACCIDENT [None]
  - PALPITATIONS [None]
